FAERS Safety Report 12059073 (Version 2)
Quarter: 2017Q2

REPORT INFORMATION
  Report Type: Spontaneous
  Country: US (occurrence: US)
  Receive Date: 20160210
  Receipt Date: 20170428
  Transmission Date: 20170829
  Serious: No
  Sender: FDA-Public Use
  Company Number: US-STRIDES ARCOLAB LIMITED-2015SP002304

PATIENT

DRUGS (10)
  1. TACROLIMUS. [Suspect]
     Active Substance: TACROLIMUS
     Indication: DIFFUSE CUTANEOUS MASTOCYTOSIS
     Dosage: 0.1 MG/KG/DAY, UNKNOWN
     Route: 048
  2. FEXOFENADINE [Concomitant]
     Active Substance: FEXOFENADINE\FEXOFENADINE HYDROCHLORIDE
     Indication: DIFFUSE CUTANEOUS MASTOCYTOSIS
     Dosage: UNK
     Route: 065
  3. LANSOPRAZOLE. [Concomitant]
     Active Substance: LANSOPRAZOLE
     Indication: DIFFUSE CUTANEOUS MASTOCYTOSIS
     Dosage: UNK
     Route: 065
  4. ANTIBIOTICS [Concomitant]
     Active Substance: UNSPECIFIED INGREDIENT
     Indication: DIFFUSE CUTANEOUS MASTOCYTOSIS
     Dosage: UNK
     Route: 061
  5. TACROLIMUS. [Suspect]
     Active Substance: TACROLIMUS
     Dosage: 0.3 MG/KG/DAY, EVERY 12 HRS
     Route: 065
  6. CROMOLYN                           /00082101/ [Concomitant]
     Dosage: UNK
     Route: 061
  7. CETIRIZINE [Concomitant]
     Active Substance: CETIRIZINE HYDROCHLORIDE
     Indication: DIFFUSE CUTANEOUS MASTOCYTOSIS
     Dosage: UNK
     Route: 065
  8. RANITIDINE. [Concomitant]
     Active Substance: RANITIDINE
     Indication: DIFFUSE CUTANEOUS MASTOCYTOSIS
     Dosage: UNK
     Route: 065
  9. CROMOLYN                           /00082101/ [Concomitant]
     Indication: DIFFUSE CUTANEOUS MASTOCYTOSIS
     Dosage: UNK
     Route: 048
  10. DIPHENHYDRAMINE. [Concomitant]
     Active Substance: DIPHENHYDRAMINE
     Indication: DIFFUSE CUTANEOUS MASTOCYTOSIS
     Dosage: UNK, PRN
     Route: 065

REACTIONS (2)
  - Blood urea increased [Recovered/Resolved]
  - Diarrhoea [Recovered/Resolved]
